FAERS Safety Report 22129798 (Version 1)
Quarter: 2023Q1

REPORT INFORMATION
  Report Type: Report from Study
  Country: DE (occurrence: None)
  Receive Date: 20230323
  Receipt Date: 20230323
  Transmission Date: 20230418
  Serious: Yes (Hospitalization)
  Sender: FDA-Public Use
  Company Number: 2023A068020

PATIENT
  Sex: Female
  Weight: 73 kg

DRUGS (5)
  1. PEMBROLIZUMAB [Suspect]
     Active Substance: PEMBROLIZUMAB
     Indication: Adenocarcinoma gastric
     Dosage: 400 MILLIGRAM
     Route: 042
     Dates: start: 20221129, end: 20230228
  2. OLAPARIB [Suspect]
     Active Substance: OLAPARIB
     Indication: Adenocarcinoma gastric
     Dosage: 300 MILLIGRAM, BID
     Route: 048
     Dates: start: 20230228, end: 20230228
  3. OXALIPLATIN [Suspect]
     Active Substance: OXALIPLATIN
     Indication: Adenocarcinoma gastric
     Dosage: 85 MILLIGRAM/SQ. METER (155 MG)
     Route: 042
     Dates: start: 20221129, end: 20230214
  4. LEUCOVORIN CALCIUM [Suspect]
     Active Substance: LEUCOVORIN CALCIUM
     Indication: Adenocarcinoma gastric
     Dosage: 400 MILLIGRAM/SQ. METER (DOSE 350 MG)
     Route: 042
     Dates: start: 20221129, end: 20230214
  5. FLUOROURACIL [Suspect]
     Active Substance: FLUOROURACIL
     Indication: Adenocarcinoma gastric
     Dosage: PLANNED DOSE 2400 MILLIGRAM/SQ. METER, ADDITIONAL BOLUS 400MILLIGRAM/SQ. METER (DOSE 2175 MG)
     Route: 042
     Dates: start: 20221129, end: 20230214

REACTIONS (2)
  - General physical health deterioration [Recovering/Resolving]
  - Fatigue [Recovering/Resolving]

NARRATIVE: CASE EVENT DATE: 20230307
